FAERS Safety Report 19155039 (Version 2)
Quarter: 2022Q3

REPORT INFORMATION
  Report Type: Spontaneous
  Country: RS (occurrence: RS)
  Receive Date: 20210419
  Receipt Date: 20220901
  Transmission Date: 20221026
  Serious: Yes (Other)
  Sender: FDA-Public Use
  Company Number: RS-PFIZER INC-2021377174

PATIENT
  Age: 69 Year
  Sex: Male

DRUGS (4)
  1. LINEZOLID [Suspect]
     Active Substance: LINEZOLID
     Indication: COVID-19 pneumonia
     Dosage: 600 MG/12H (HOURS)
  2. LINEZOLID [Suspect]
     Active Substance: LINEZOLID
     Indication: Pneumonia
  3. IMIPENEM [Suspect]
     Active Substance: IMIPENEM
     Indication: COVID-19 pneumonia
     Dosage: 500 MG/6H
  4. IMIPENEM [Suspect]
     Active Substance: IMIPENEM
     Indication: Pneumonia

REACTIONS (6)
  - Clostridium difficile infection [Unknown]
  - Pneumonia [Unknown]
  - Pyrexia [Unknown]
  - White blood cell count increased [Unknown]
  - Bacterial test positive [Unknown]
  - Off label use [Unknown]
